FAERS Safety Report 8986189 (Version 2)
Quarter: 2013Q1

REPORT INFORMATION
  Report Type: Spontaneous
  Country: BR (occurrence: None)
  Receive Date: 20121217
  Receipt Date: 20121219
  Transmission Date: 20140127
  Serious: Yes (Other)
  Sender: FDA-Public Use
  Company Number: VAL_01176_2012

PATIENT
  Age: 40 Year
  Sex: Female

DRUGS (7)
  1. PARLODEL [Suspect]
     Indication: BLOOD PROLACTIN DECREASED
     Route: 048
     Dates: start: 2010
  2. BROMOPRIDE [Concomitant]
  3. DOMPERIDONE [Concomitant]
  4. PANTOPRAZOLE [Concomitant]
  5. RANITIDINE [Concomitant]
  6. DIMETHICONE [Concomitant]
  7. PROGESTERONE [Concomitant]

REACTIONS (10)
  - Gastritis [None]
  - Blood prolactin increased [None]
  - Dyspepsia [None]
  - Burning sensation [None]
  - Abdominal pain upper [None]
  - Chills [None]
  - Malaise [None]
  - Nausea [None]
  - Dizziness [None]
  - Gastric disorder [None]
